FAERS Safety Report 9951205 (Version 1)
Quarter: 2014Q1

REPORT INFORMATION
  Report Type: Spontaneous
  Country: US (occurrence: US)
  Receive Date: 20140304
  Receipt Date: 20140304
  Transmission Date: 20141002
  Serious: Yes (Other)
  Sender: FDA-Public Use
  Company Number: US-SA-2014SA027285

PATIENT
  Age: 79 Year
  Sex: Female

DRUGS (1)
  1. NASACORT AQ [Suspect]
     Indication: HYPERSENSITIVITY
     Route: 065

REACTIONS (3)
  - Heart valve incompetence [Not Recovered/Not Resolved]
  - Candida infection [Not Recovered/Not Resolved]
  - Hypersensitivity [Not Recovered/Not Resolved]
